FAERS Safety Report 6892755-1 (Version None)
Quarter: 2010Q3

REPORT INFORMATION
  Report Type: 
  Country: None (occurrence: None)
  Receive Date: 20100731
  Receipt Date: 20080912
  Transmission Date: 20110219
  Serious: No
  Sender: FDA-Public Use
  Company Number: US-PFIZER INC-2007006359

PATIENT
  Age: 43 Year
  Sex: Female

DRUGS (3)
  1. NEURONTIN [Suspect]
     Indication: NEUROPATHY PERIPHERAL
     Dosage: BELOW 900MG
     Dates: start: 20010101, end: 20051201
  2. PREVACID [Concomitant]
  3. FLEXERIL [Concomitant]

REACTIONS (4)
  - ARRHYTHMIA [None]
  - DRUG WITHDRAWAL SYNDROME [None]
  - HEART RATE ABNORMAL [None]
  - WEIGHT DECREASED [None]
